FAERS Safety Report 19440393 (Version 1)
Quarter: 2021Q2

REPORT INFORMATION
  Report Type: Spontaneous
  Country: GB (occurrence: GB)
  Receive Date: 20210621
  Receipt Date: 20210621
  Transmission Date: 20210717
  Serious: Yes (Life-Threatening, Other)
  Sender: FDA-Public Use
  Company Number: GB-AUROBINDO-AUR-APL-2021-025525

PATIENT
  Age: 34 Year
  Sex: Male

DRUGS (32)
  1. DULOXETINE. [Suspect]
     Active Substance: DULOXETINE
     Indication: PRODUCT USED FOR UNKNOWN INDICATION
     Dosage: UNK
     Route: 065
  2. AMITRIPTYLINE [Concomitant]
     Active Substance: AMITRIPTYLINE
     Indication: PRODUCT USED FOR UNKNOWN INDICATION
     Dosage: UNK ( TAKE 3 TABLET AT 6 PM)
     Route: 065
     Dates: start: 20210315
  3. AMITRIPTYLINE [Concomitant]
     Active Substance: AMITRIPTYLINE
     Dosage: UNK ( TAKE 3 TABLET AT 6 PM)
     Route: 065
     Dates: start: 20210413
  4. LANSOPRAZOLE. [Concomitant]
     Active Substance: LANSOPRAZOLE
     Dosage: UNK ( 1 EVERY DAY WITH NAPROXEN)
     Route: 065
     Dates: start: 20210520
  5. DULOXETINE. [Concomitant]
     Active Substance: DULOXETINE
     Indication: PRODUCT USED FOR UNKNOWN INDICATION
     Dosage: UNK UNK, DAILY (ONE DAILY)
     Route: 065
     Dates: start: 20210426
  6. PREGABALIN. [Concomitant]
     Active Substance: PREGABALIN
     Indication: PRODUCT USED FOR UNKNOWN INDICATION
     Dosage: UNK (TAKE 1 ,3 TIMES A DAY
     Route: 065
     Dates: start: 20210315
  7. PREGABALIN. [Concomitant]
     Active Substance: PREGABALIN
     Dosage: UNK( TAKE 1, 3 TIMES A DAY
     Route: 065
     Dates: start: 20210506
  8. PREGABALIN. [Concomitant]
     Active Substance: PREGABALIN
     Dosage: UNK (TAKE 1, 3 TIMES A DAY
     Route: 065
     Dates: start: 20210602
  9. LANSOPRAZOLE. [Concomitant]
     Active Substance: LANSOPRAZOLE
     Dosage: UNK ( 1 EVERY DAY WITH NAPROXEN)
     Route: 065
     Dates: start: 20210426
  10. NAPROXEN. [Concomitant]
     Active Substance: NAPROXEN
     Dosage: UNK,(1 TABLET TWICE DAILY)
     Route: 065
     Dates: start: 20210413
  11. AMITRIPTYLINE [Concomitant]
     Active Substance: AMITRIPTYLINE
     Dosage: UNK ( TAKE 3 TABLET AT 6 PM)
     Route: 065
     Dates: start: 20210329
  12. AMITRIPTYLINE [Concomitant]
     Active Substance: AMITRIPTYLINE
     Dosage: UNK ( TAKE 3 TABLET AT 6 PM)
     Route: 065
     Dates: start: 20210426
  13. NAPROXEN. [Concomitant]
     Active Substance: NAPROXEN
     Dosage: UNK,(1 TABLET TWICE DAILY)
     Route: 065
     Dates: start: 20210329
  14. NAPROXEN. [Concomitant]
     Active Substance: NAPROXEN
     Dosage: UNK,(1 TABLET TWICE DAILY)
     Route: 065
     Dates: start: 20210520
  15. PREGABALIN. [Concomitant]
     Active Substance: PREGABALIN
     Dosage: UNK (TAKE  1, 3 TIMES A DAY)
     Route: 065
     Dates: start: 20210426
  16. ZOPICLONE [Concomitant]
     Active Substance: ZOPICLONE
     Dosage: UNK ( 1 TABLET AT NIGHT IF NEEDED)
     Route: 065
     Dates: start: 20210426
  17. NAPROXEN. [Concomitant]
     Active Substance: NAPROXEN
     Dosage: UNK,(1 TABLET TWICE DAILY)
     Route: 065
     Dates: start: 20210506
  18. AMITRIPTYLINE [Concomitant]
     Active Substance: AMITRIPTYLINE
     Dosage: UNK ( TAKE 3 TABLET AT 6 PM)
     Route: 065
     Dates: start: 20210506
  19. AMITRIPTYLINE [Concomitant]
     Active Substance: AMITRIPTYLINE
     Dosage: UNK ( TAKE 3 TABLET AT 6 PM)
     Route: 065
     Dates: start: 20210602
  20. LANSOPRAZOLE. [Concomitant]
     Active Substance: LANSOPRAZOLE
     Indication: PRODUCT USED FOR UNKNOWN INDICATION
     Dosage: UNK ( 1 EVERY DAY WITH NAPROXEN)
     Route: 065
     Dates: start: 20210315
  21. NAPROXEN. [Concomitant]
     Active Substance: NAPROXEN
     Indication: PRODUCT USED FOR UNKNOWN INDICATION
     Dosage: UNK,(1 TABLET TWICE DAILY)
     Route: 065
     Dates: start: 20210315
  22. NAPROXEN. [Concomitant]
     Active Substance: NAPROXEN
     Dosage: UNK,(1 TABLET TWICE DAILY)
     Route: 065
     Dates: start: 20210602
  23. PREGABALIN. [Concomitant]
     Active Substance: PREGABALIN
     Dosage: UNK ( TAKE 1, 3 TIMES A DAY
     Route: 065
     Dates: start: 20210329
  24. PREGABALIN. [Concomitant]
     Active Substance: PREGABALIN
     Dosage: UNK ( TAKE  1, 3 TIMES A DAY)
     Route: 065
     Dates: start: 20210413
  25. PREGABALIN. [Concomitant]
     Active Substance: PREGABALIN
     Dosage: UNK (TAKE 1 , 3 TIMES A DAY
     Route: 065
     Dates: start: 20210520
  26. ZOPICLONE [Concomitant]
     Active Substance: ZOPICLONE
     Indication: PRODUCT USED FOR UNKNOWN INDICATION
     Dosage: UNK (1 TABLET AT NIGHT)
     Route: 065
     Dates: start: 20210413
  27. AMITRIPTYLINE [Concomitant]
     Active Substance: AMITRIPTYLINE
     Dosage: UNK ( TAKE 3 TABLET AT 6 PM)
     Route: 065
     Dates: start: 20210520
  28. DULOXETINE. [Concomitant]
     Active Substance: DULOXETINE
     Dosage: UNK UNK, DAILY (ONE DAILY)
     Route: 065
     Dates: start: 20210506
  29. LANSOPRAZOLE. [Concomitant]
     Active Substance: LANSOPRAZOLE
     Dosage: UNK ( 1 EVERY DAY WITH NAPROXEN)
     Route: 065
     Dates: start: 20210413
  30. NAPROXEN. [Concomitant]
     Active Substance: NAPROXEN
     Dosage: UNK (1 TABLET TWICE DAILY)
     Route: 065
     Dates: start: 20210407
  31. NAPROXEN. [Concomitant]
     Active Substance: NAPROXEN
     Dosage: UNK,(1 TABLET TWICE DAILY)
     Route: 065
     Dates: start: 20210426
  32. TRAZODONE [Concomitant]
     Active Substance: TRAZODONE HYDROCHLORIDE
     Indication: PRODUCT USED FOR UNKNOWN INDICATION
     Dosage: UNK, DAILY  ( 1 TABLET DAILY AT NIGHT)
     Route: 065
     Dates: start: 20210602

REACTIONS (1)
  - Adverse drug reaction [Recovering/Resolving]

NARRATIVE: CASE EVENT DATE: 20210329
